FAERS Safety Report 8112083-6 (Version None)
Quarter: 2012Q1

REPORT INFORMATION
  Report Type: 
  Country: None (occurrence: None)
  Receive Date: 20120203
  Receipt Date: 20120125
  Transmission Date: 20120608
  Serious: Yes (Hospitalization)
  Sender: FDA-Public Use
  Company Number: SE-SANOFI-AVENTIS-2011SA033929

PATIENT
  Sex: Female

DRUGS (10)
  1. MULTAQ [Suspect]
     Indication: ATRIAL FIBRILLATION
     Route: 048
     Dates: start: 20100701, end: 20100901
  2. WARFARIN SODIUM [Concomitant]
  3. ZOPICLON [Concomitant]
  4. SERTRALINE HYDROCHLORIDE [Concomitant]
     Indication: ANXIETY
     Dates: start: 20101223
  5. CARDIZEM [Concomitant]
     Indication: ATRIAL FIBRILLATION
  6. MULTAQ [Suspect]
     Route: 048
     Dates: start: 20101201, end: 20111128
  7. SERTRALINE HYDROCHLORIDE [Concomitant]
     Indication: DEPRESSION
     Dates: start: 20101223
  8. PANOCOD [Concomitant]
  9. ASPIRIN [Concomitant]
  10. OXAZEPAM [Concomitant]

REACTIONS (12)
  - EJECTION FRACTION DECREASED [None]
  - PYREXIA [None]
  - FLUID RETENTION [None]
  - FACE OEDEMA [None]
  - WEIGHT INCREASED [None]
  - PERICARDITIS [None]
  - TACHYPNOEA [None]
  - NASAL CONGESTION [None]
  - CHEST PAIN [None]
  - HYPOXIA [None]
  - COUGH [None]
  - CARDIAC FAILURE [None]
